FAERS Safety Report 7058067-0 (Version None)
Quarter: 2010Q4

REPORT INFORMATION
  Report Type: 
  Country: None (occurrence: None)
  Receive Date: 20101022
  Receipt Date: 20101012
  Transmission Date: 20110411
  Serious: Yes (Other)
  Sender: FDA-Public Use
  Company Number: JP-PFIZER INC-2010129173

PATIENT
  Age: 49 Year
  Sex: Female

DRUGS (3)
  1. FARMORUBICIN [Suspect]
     Indication: BREAST CANCER
  2. FLUOROURACIL [Suspect]
     Indication: BREAST CANCER
  3. CYCLOPHOSPHAMIDE [Concomitant]

REACTIONS (1)
  - HYPOTHYROIDISM [None]
